FAERS Safety Report 23885781 (Version 1)
Quarter: 2024Q2

REPORT INFORMATION
  Report Type: Spontaneous
  Country: JP (occurrence: JP)
  Receive Date: 20240522
  Receipt Date: 20240522
  Transmission Date: 20240716
  Serious: Yes (Other)
  Sender: FDA-Public Use
  Company Number: JP-BAUSCH-BL-2024-007614

PATIENT
  Age: 34 Year
  Sex: Female

DRUGS (30)
  1. ACYCLOVIR [Suspect]
     Active Substance: ACYCLOVIR
     Indication: Antiviral prophylaxis
     Dosage: DAY 7 TO DAY 35
     Route: 048
     Dates: start: 2022, end: 2022
  2. ACYCLOVIR [Suspect]
     Active Substance: ACYCLOVIR
     Route: 048
     Dates: start: 2022
  3. ACYCLOVIR [Suspect]
     Active Substance: ACYCLOVIR
     Route: 065
  4. ACYCLOVIR [Suspect]
     Active Substance: ACYCLOVIR
     Dosage: FROM DAY 301
     Route: 048
     Dates: start: 2022, end: 2022
  5. ACYCLOVIR [Suspect]
     Active Substance: ACYCLOVIR
     Route: 048
     Dates: start: 2022, end: 2022
  6. ACYCLOVIR [Suspect]
     Active Substance: ACYCLOVIR
     Indication: Antiviral prophylaxis
     Route: 042
  7. GANCICLOVIR [Concomitant]
     Active Substance: GANCICLOVIR
     Indication: Cytomegalovirus infection
     Dosage: ON DAY -9 TO DAY 3 AFTER TRANSPLANTATION
     Route: 065
     Dates: start: 2022, end: 2022
  8. CYTARABINE [Concomitant]
     Active Substance: CYTARABINE
     Indication: Bone marrow conditioning regimen
     Dosage: DAY ?6 AND? 5
     Route: 065
     Dates: start: 2022, end: 2022
  9. CYCLOPHOSPHAMIDE [Concomitant]
     Active Substance: CYCLOPHOSPHAMIDE
     Indication: Bone marrow conditioning regimen
     Dosage: DAY ?4 AND ?3
     Route: 065
  10. TACROLIMUS [Concomitant]
     Active Substance: TACROLIMUS
     Indication: Prophylaxis against graft versus host disease
     Route: 042
  11. TACROLIMUS [Concomitant]
     Active Substance: TACROLIMUS
     Route: 048
  12. TACROLIMUS [Concomitant]
     Active Substance: TACROLIMUS
     Route: 048
  13. METHOTREXATE [Concomitant]
     Active Substance: METHOTREXATE
     Indication: Prophylaxis against graft versus host disease
     Route: 065
  14. METHOTREXATE [Concomitant]
     Active Substance: METHOTREXATE
     Route: 065
  15. METHOTREXATE [Concomitant]
     Active Substance: METHOTREXATE
     Route: 065
  16. LETERMOVIR [Concomitant]
     Active Substance: LETERMOVIR
     Indication: Antiviral prophylaxis
     Route: 065
  17. LETERMOVIR [Concomitant]
     Active Substance: LETERMOVIR
     Route: 065
  18. LETERMOVIR [Concomitant]
     Active Substance: LETERMOVIR
     Route: 065
  19. PREDNISOLONE [Concomitant]
     Active Substance: PREDNISOLONE
     Indication: Chronic graft versus host disease
     Dosage: 25
     Route: 065
     Dates: start: 2022, end: 2022
  20. PREDNISOLONE [Concomitant]
     Active Substance: PREDNISOLONE
     Route: 065
     Dates: start: 2022, end: 2022
  21. PREDNISOLONE [Concomitant]
     Active Substance: PREDNISOLONE
     Route: 065
     Dates: start: 2022, end: 2022
  22. PREDNISOLONE [Concomitant]
     Active Substance: PREDNISOLONE
     Route: 065
     Dates: start: 2022, end: 2022
  23. PREDNISOLONE [Concomitant]
     Active Substance: PREDNISOLONE
     Route: 065
     Dates: start: 2022, end: 2022
  24. PREDNISOLONE [Concomitant]
     Active Substance: PREDNISOLONE
     Route: 065
  25. PREDNISOLONE [Concomitant]
     Active Substance: PREDNISOLONE
     Route: 065
  26. PREDNISOLONE [Concomitant]
     Active Substance: PREDNISOLONE
     Route: 065
  27. PREDNISOLONE [Concomitant]
     Active Substance: PREDNISOLONE
     Route: 065
  28. PREDNISOLONE [Concomitant]
     Active Substance: PREDNISOLONE
     Route: 065
  29. PREDNISOLONE [Concomitant]
     Active Substance: PREDNISOLONE
     Route: 065
  30. VIDARABINE [Concomitant]
     Active Substance: VIDARABINE
     Indication: Antiviral prophylaxis
     Route: 065

REACTIONS (2)
  - Pathogen resistance [Unknown]
  - Drug ineffective [Unknown]

NARRATIVE: CASE EVENT DATE: 20220101
